FAERS Safety Report 25958461 (Version 2)
Quarter: 2025Q4

REPORT INFORMATION
  Report Type: Spontaneous
  Country: JP (occurrence: JP)
  Receive Date: 20251024
  Receipt Date: 20251104
  Transmission Date: 20260117
  Serious: Yes (Other)
  Sender: BAUSCH AND LOMB
  Company Number: JP-ALFASIGMA-2025-AER-06859

PATIENT
  Age: 57 Year
  Sex: Male

DRUGS (2)
  1. RIFAXIMIN [Suspect]
     Active Substance: RIFAXIMIN
     Indication: Hepatic encephalopathy
     Route: 065
  2. LEVOCARNITINE [Concomitant]
     Active Substance: LEVOCARNITINE
     Indication: Hepatic encephalopathy

REACTIONS (3)
  - Hepatic encephalopathy [Unknown]
  - Condition aggravated [Unknown]
  - Drug ineffective [Unknown]
